FAERS Safety Report 9302124 (Version 1)
Quarter: 2013Q2

REPORT INFORMATION
  Report Type: Spontaneous
  Country: US (occurrence: US)
  Receive Date: 20130521
  Receipt Date: 20130521
  Transmission Date: 20140414
  Serious: No
  Sender: FDA-Public Use
  Company Number: US-009507513-1305USA007480

PATIENT
  Sex: Male

DRUGS (3)
  1. PEGINTRON [Suspect]
     Indication: HEPATITIS C
     Dosage: 150 MCG/0.5 ML
     Dates: start: 201302
  2. LISINOPRIL [Concomitant]
  3. COLCRYS [Concomitant]

REACTIONS (4)
  - Increased appetite [Recovering/Resolving]
  - Decreased appetite [Recovering/Resolving]
  - Asthenia [Recovering/Resolving]
  - Gait disturbance [Recovering/Resolving]
